FAERS Safety Report 16688417 (Version 3)
Quarter: 2019Q3

REPORT INFORMATION
  Report Type: Spontaneous
  Country: US (occurrence: US)
  Receive Date: 20190809
  Receipt Date: 20190917
  Transmission Date: 20191004
  Serious: Yes (Hospitalization)
  Sender: FDA-Public Use
  Company Number: US-PFIZER INC-2019337890

PATIENT
  Age: 68 Year
  Sex: Male

DRUGS (3)
  1. METHYLPREDNISOLONE. [Suspect]
     Active Substance: METHYLPREDNISOLONE
     Indication: AUTOIMMUNE COLITIS
     Dosage: TAPER OVER 3 WEEKS
     Route: 048
  2. METHYLPREDNISOLONE SODIUM SUCCINATE. [Suspect]
     Active Substance: METHYLPREDNISOLONE SODIUM SUCCINATE
     Indication: AUTOIMMUNE COLITIS
     Dosage: 100 MG, 2X/DAY (FOR 3 DAYS)
     Route: 042
  3. INFLIXIMAB [Suspect]
     Active Substance: INFLIXIMAB
     Indication: AUTOIMMUNE COLITIS
     Dosage: 5 MG/KG, SINGLE, (SINGLE DOSE 5 MG/KG)
     Route: 065

REACTIONS (4)
  - Listeriosis [Unknown]
  - Product use in unapproved indication [Unknown]
  - Off label use [Unknown]
  - Endophthalmitis [Unknown]
